FAERS Safety Report 25005473 (Version 3)
Quarter: 2025Q2

REPORT INFORMATION
  Report Type: Spontaneous
  Country: GB (occurrence: GB)
  Receive Date: 20250224
  Receipt Date: 20250428
  Transmission Date: 20250717
  Serious: Yes (Hospitalization, Other)
  Sender: MYLAN
  Company Number: GB-MYLANLABS-2025M1015342

PATIENT
  Sex: Female
  Weight: 114 kg

DRUGS (9)
  1. CLOZARIL [Suspect]
     Active Substance: CLOZAPINE
     Indication: Product used for unknown indication
     Dosage: UNK, BID (100MG MANE 225MG NOCTE)
     Dates: start: 20180919
  2. CLOZARIL [Suspect]
     Active Substance: CLOZAPINE
     Dates: start: 20250108, end: 20250211
  3. ARIPIPRAZOLE [Concomitant]
     Active Substance: ARIPIPRAZOLE
     Dosage: 30 MILLIGRAM, AM (MORNING)
     Dates: end: 202502
  4. LITHIUM [Concomitant]
     Active Substance: LITHIUM
  5. VENLAFAXINE [Concomitant]
     Active Substance: VENLAFAXINE HYDROCHLORIDE
  6. LISINOPRIL [Concomitant]
     Active Substance: LISINOPRIL
  7. LEVOTHYROXINE [Concomitant]
     Active Substance: LEVOTHYROXINE
     Dosage: 50 MICROGRAM, QD
  8. FOLIC ACID [Concomitant]
     Active Substance: FOLIC ACID
     Dosage: 5 MILLIGRAM, QD
  9. ATORVASTATIN [Concomitant]
     Active Substance: ATORVASTATIN
     Dosage: 20 MILLIGRAM, QD

REACTIONS (6)
  - Schizoaffective disorder [Unknown]
  - Disease recurrence [Unknown]
  - Neuroleptic malignant syndrome [Recovered/Resolved]
  - Lower respiratory tract infection [Unknown]
  - Catatonia [Unknown]
  - Urinary tract infection [Unknown]

NARRATIVE: CASE EVENT DATE: 20250101
